FAERS Safety Report 9387712 (Version 2)
Quarter: 2013Q3

REPORT INFORMATION
  Report Type: Spontaneous
  Country: FR (occurrence: FR)
  Receive Date: 20130708
  Receipt Date: 20130910
  Transmission Date: 20140515
  Serious: Yes (Other)
  Sender: FDA-Public Use
  Company Number: FR-ROCHE-1241197

PATIENT
  Sex: 0

DRUGS (2)
  1. MABTHERA [Suspect]
     Indication: STIFF PERSON SYNDROME
     Route: 065
  2. MABTHERA [Suspect]
     Indication: OFF LABEL USE

REACTIONS (1)
  - Progressive multifocal leukoencephalopathy [Not Recovered/Not Resolved]
